FAERS Safety Report 9868248 (Version 1)
Quarter: 2014Q1

REPORT INFORMATION
  Report Type: Report from Study
  Country: CA (occurrence: CA)
  Receive Date: 20140204
  Receipt Date: 20140204
  Transmission Date: 20141002
  Serious: Yes (Hospitalization)
  Sender: FDA-Public Use
  Company Number: CA-ABBVIE-14P-028-1196288-00

PATIENT
  Sex: Male

DRUGS (2)
  1. HUMIRA [Suspect]
     Indication: CROHN^S DISEASE
     Route: 058
     Dates: start: 20090908
  2. HUMIRA [Suspect]
     Indication: INTESTINAL FISTULA
     Route: 058

REACTIONS (3)
  - Intestinal obstruction [Recovered/Resolved]
  - Pupillary reflex impaired [Unknown]
  - Extraocular muscle paresis [Not Recovered/Not Resolved]
